FAERS Safety Report 8993442 (Version 2)
Quarter: 2013Q3

REPORT INFORMATION
  Report Type: Spontaneous
  Country: US (occurrence: US)
  Receive Date: 20130102
  Receipt Date: 20130703
  Transmission Date: 20140515
  Serious: No
  Sender: FDA-Public Use
  Company Number: US-BAYER-2013-000273

PATIENT
  Age: 40 Year
  Sex: Female
  Weight: 56.69 kg

DRUGS (4)
  1. BETASERON [Suspect]
     Indication: RELAPSING-REMITTING MULTIPLE SCLEROSIS
     Dosage: 0.25 MG, QOD
     Route: 058
  2. MAXALT [Concomitant]
     Dosage: 5 MG, UNK
  3. CALCIUM [Concomitant]
     Dosage: 500 MG, UNK
  4. VITAMIN D3 [Concomitant]
     Dosage: 10000 U, UNK

REACTIONS (4)
  - Drug ineffective [None]
  - Pyrexia [Unknown]
  - Influenza like illness [Unknown]
  - Arthralgia [Unknown]
